FAERS Safety Report 7121711-3 (Version None)
Quarter: 2010Q4

REPORT INFORMATION
  Report Type: 
  Country: None (occurrence: None)
  Receive Date: 20101124
  Receipt Date: 20101118
  Transmission Date: 20110411
  Serious: Yes (Other)
  Sender: FDA-Public Use
  Company Number: AU-JNJFOC-20100607207

PATIENT
  Age: 18 Year
  Sex: Male

DRUGS (2)
  1. HALOPERIDOL [Suspect]
     Indication: MANIA
     Route: 065
  2. LITHIUM CARBONATE [Suspect]
     Indication: MANIA
     Route: 065

REACTIONS (3)
  - CATATONIA [None]
  - COGWHEEL RIGIDITY [None]
  - SEBORRHOEA [None]
